FAERS Safety Report 22248804 (Version 1)
Quarter: 2023Q2

REPORT INFORMATION
  Report Type: Spontaneous
  Country: US (occurrence: US)
  Receive Date: 20230425
  Receipt Date: 20230425
  Transmission Date: 20230722
  Serious: Yes (Life-Threatening, Hospitalization, Other)
  Sender: FDA-Public Use
  Company Number: US-drreddys-LIT/USA/23/0163886

PATIENT
  Age: 59 Year
  Sex: Female

DRUGS (18)
  1. MELPHALAN HYDROCHLORIDE [Suspect]
     Active Substance: MELPHALAN HYDROCHLORIDE
     Indication: Immunosuppressant drug therapy
  2. SIROLIMUS [Suspect]
     Active Substance: SIROLIMUS
     Indication: Graft versus host disease
  3. TACROLIMUS [Suspect]
     Active Substance: TACROLIMUS
     Indication: Graft versus host disease
     Dates: end: 201908
  4. FLUCONAZOLE [Suspect]
     Active Substance: FLUCONAZOLE
     Indication: Antibiotic prophylaxis
  5. FLUDARABINE [Suspect]
     Active Substance: FLUDARABINE PHOSPHATE
     Indication: Immunosuppressant drug therapy
  6. ALEMTUZUMAB [Suspect]
     Active Substance: ALEMTUZUMAB
     Indication: Graft versus host disease
  7. VALACYCLOVIR [Suspect]
     Active Substance: VALACYCLOVIR HYDROCHLORIDE
     Indication: Antibiotic prophylaxis
  8. LETERMOVIR [Suspect]
     Active Substance: LETERMOVIR
     Indication: Antibiotic prophylaxis
  9. COTRIMOXAZOLE [Suspect]
     Active Substance: SULFAMETHOXAZOLE\TRIMETHOPRIM
     Indication: Antibiotic prophylaxis
  10. METHYLPREDNISOLONE [Suspect]
     Active Substance: METHYLPREDNISOLONE
     Indication: Graft versus host disease
     Dates: start: 201908
  11. PREDNISONE [Suspect]
     Active Substance: PREDNISONE
     Indication: Graft versus host disease
     Dosage: GRADUALLY TAPERED OVER THE NEXT MONTH
  12. PREDNISONE [Suspect]
     Active Substance: PREDNISONE
     Dates: start: 20190912
  13. RITUXIMAB [Suspect]
     Active Substance: RITUXIMAB
     Indication: Epstein-Barr viraemia
     Route: 042
     Dates: start: 201909
  14. RITUXIMAB [Suspect]
     Active Substance: RITUXIMAB
     Dosage: ON DAY 9 OF HOSPITALIZATION
  15. HYDROCORTISONE [Suspect]
     Active Substance: HYDROCORTISONE
     Indication: Epstein-Barr viraemia
     Dates: start: 201909
  16. OFATUMUMAB [Suspect]
     Active Substance: OFATUMUMAB
     Indication: Post transplant lymphoproliferative disorder
  17. OFATUMUMAB [Suspect]
     Active Substance: OFATUMUMAB
     Dosage: DOSE INCREASED TO 1000 MG
  18. OFATUMUMAB [Suspect]
     Active Substance: OFATUMUMAB
     Dosage: ON DAYS 10,13,17 AND 21 OF HOSPITALISATION

REACTIONS (8)
  - Septic shock [Unknown]
  - Pyrexia [Unknown]
  - Hypotension [Unknown]
  - Chills [Unknown]
  - Epstein-Barr virus associated lymphoproliferative disorder [Recovering/Resolving]
  - Klebsiella infection [Unknown]
  - Acute kidney injury [Unknown]
  - Drug ineffective [Unknown]
